FAERS Safety Report 7296675-2 (Version None)
Quarter: 2011Q1

REPORT INFORMATION
  Report Type: 
  Country: None (occurrence: None)
  Receive Date: 20110216
  Receipt Date: 20110214
  Transmission Date: 20110831
  Serious: Yes (Life-Threatening)
  Sender: FDA-Public Use
  Company Number: PHHO2009FR12826

PATIENT
  Sex: Female
  Weight: 57 kg

DRUGS (11)
  1. STI571/CGP57148B [Suspect]
     Indication: ACUTE LYMPHOCYTIC LEUKAEMIA
     Dosage: 800 MG, A DAY
     Route: 048
     Dates: end: 20091007
  2. BACTRIM [Suspect]
     Dosage: UNK
     Route: 048
     Dates: start: 20090803, end: 20091007
  3. ZELITREX [Concomitant]
  4. TOPALGIC [Concomitant]
     Indication: PAIN
  5. DEPO-MEDROL [Concomitant]
  6. STI571/CGP57148B [Suspect]
     Dosage: 800 MG, A DAY
     Route: 048
     Dates: start: 20091116
  7. DEXAMETHASONE [Concomitant]
     Indication: ACUTE LYMPHOCYTIC LEUKAEMIA
  8. VINCRISTINE [Concomitant]
     Indication: ACUTE LYMPHOCYTIC LEUKAEMIA
  9. METHOTREXATE SODIUM [Concomitant]
     Indication: ACUTE LYMPHOCYTIC LEUKAEMIA
  10. ARA-C [Concomitant]
     Indication: ACUTE LYMPHOCYTIC LEUKAEMIA
  11. VOGALENE [Concomitant]
     Indication: NAUSEA

REACTIONS (13)
  - HYPOVOLAEMIC SHOCK [None]
  - LEUKOCYTOSIS [None]
  - HYPOVOLAEMIA [None]
  - DRUG RASH WITH EOSINOPHILIA AND SYSTEMIC SYMPTOMS [None]
  - ANURIA [None]
  - DERMATITIS EXFOLIATIVE [None]
  - RENAL FAILURE [None]
  - MYELOCYTOSIS [None]
  - LYMPHADENOPATHY [None]
  - OLIGURIA [None]
  - HYPERKALAEMIA [None]
  - DEHYDRATION [None]
  - ANAEMIA [None]
